FAERS Safety Report 6150911-4 (Version None)
Quarter: 2009Q2

REPORT INFORMATION
  Report Type: 
  Country: None (occurrence: None)
  Receive Date: 20090408
  Receipt Date: 20090320
  Transmission Date: 20091009
  Serious: Yes (Hospitalization)
  Sender: FDA-Public Use
  Company Number: 2009AL001673

PATIENT
  Age: 77 Year
  Sex: Female

DRUGS (16)
  1. DIGOXIN [Suspect]
     Dosage: PO
     Route: 048
  2. CATAPRES [Concomitant]
  3. COUMADIN [Concomitant]
  4. LISINOPRIL [Concomitant]
  5. VIOXX [Concomitant]
  6. CARDIZEM [Concomitant]
  7. HYDROCHLOROTHIAZIDE [Concomitant]
  8. TYLENOL [Concomitant]
  9. EFFEXOR [Concomitant]
  10. PEPCID [Concomitant]
  11. TRENTAL [Concomitant]
  12. CELEBREX [Concomitant]
  13. ZOCOR [Concomitant]
  14. ASPIRIN [Concomitant]
  15. COLACE [Concomitant]
  16. PERCOCET [Concomitant]

REACTIONS (10)
  - ANGINA UNSTABLE [None]
  - ANXIETY [None]
  - CORONARY ARTERY DISEASE [None]
  - DYSARTHRIA [None]
  - ECONOMIC PROBLEM [None]
  - EMOTIONAL DISORDER [None]
  - HEART RATE INCREASED [None]
  - HEMIPARESIS [None]
  - INJURY [None]
  - PAIN [None]
